FAERS Safety Report 6013499-4 (Version None)
Quarter: 2008Q4

REPORT INFORMATION
  Report Type: 
  Country: None (occurrence: None)
  Receive Date: 20081219
  Receipt Date: 20081210
  Transmission Date: 20090506
  Serious: Yes (Other)
  Sender: FDA-Public Use
  Company Number: PHEH2008US10864

PATIENT
  Sex: Female
  Weight: 49.887 kg

DRUGS (13)
  1. RECLAST [Suspect]
     Indication: OSTEOPOROSIS
     Dosage: 5 MG ONCE YEARLY
     Route: 042
     Dates: start: 20081028
  2. ASPIRIN [Concomitant]
     Indication: MITRAL VALVE DISEASE
     Dosage: 81 MG, QD
     Route: 048
     Dates: start: 20060109
  3. ASPIRIN [Concomitant]
     Indication: SINUS ARRHYTHMIA
  4. CALCIUM WITH VITAMIN D [Concomitant]
     Indication: OSTEOPOROSIS
     Dosage: 600MG/400IU, 2 DAILY
     Route: 048
     Dates: start: 20041109
  5. FOLIC ACID [Concomitant]
     Indication: HAEMOCHROMATOSIS
     Dosage: 1 MG, QD
     Route: 048
  6. FOLIC ACID [Concomitant]
     Indication: MACROCYTOSIS
  7. HYDROCHLOROTHIAZIDE [Concomitant]
     Indication: OEDEMA
     Dosage: 25 MG, QD
     Route: 048
  8. LOPRESSOR [Concomitant]
     Indication: HYPERTENSION
     Dosage: 50 MG, QD
     Route: 048
  9. LOPRESSOR [Concomitant]
     Indication: PALPITATIONS
  10. MAVIK [Concomitant]
     Indication: HYPERTENSION
     Dosage: 4 MG, QD
     Route: 048
  11. MAVIK [Concomitant]
     Indication: PALPITATIONS
  12. MIACALCIN [Concomitant]
  13. LIPITOR [Concomitant]
     Indication: HYPERLIPIDAEMIA
     Dosage: 20 MG, QD AT BEDTIME
     Route: 048

REACTIONS (8)
  - ARTHRALGIA [None]
  - GAIT DISTURBANCE [None]
  - HEART RATE IRREGULAR [None]
  - MUSCULAR WEAKNESS [None]
  - MUSCULOSKELETAL PAIN [None]
  - MYALGIA [None]
  - NECK PAIN [None]
  - PALPITATIONS [None]
